FAERS Safety Report 9500962 (Version 2)
Quarter: 2013Q4

REPORT INFORMATION
  Report Type: Spontaneous
  Country: IT (occurrence: IT)
  Receive Date: 20130905
  Receipt Date: 20131025
  Transmission Date: 20140711
  Serious: Yes (Hospitalization)
  Sender: FDA-Public Use
  Company Number: PHHY2013IT095137

PATIENT
  Sex: Female

DRUGS (1)
  1. DIAZEPAM [Suspect]
     Indication: DRUG ABUSE
     Dosage: 60 ML, UNK
     Route: 048
     Dates: start: 20130806, end: 20130806

REACTIONS (2)
  - Loss of consciousness [Recovered/Resolved]
  - Drug abuse [Recovered/Resolved]
